FAERS Safety Report 6926309-5 (Version None)
Quarter: 2010Q3

REPORT INFORMATION
  Report Type: 
  Country: None (occurrence: None)
  Receive Date: 20100816
  Receipt Date: 20100806
  Transmission Date: 20110219
  Serious: Yes (Hospitalization)
  Sender: FDA-Public Use
  Company Number: US-ABBOTT-10P-163-0662621-00

PATIENT
  Sex: Male
  Weight: 96.702 kg

DRUGS (10)
  1. NIASPAN [Suspect]
     Indication: PRODUCT USED FOR UNKNOWN INDICATION
     Dates: start: 20090901, end: 20091001
  2. NIASPAN [Suspect]
     Dates: start: 20091001, end: 20091101
  3. NIASPAN [Suspect]
  4. NIASPAN [Suspect]
     Dates: end: 20100101
  5. EFFIENT [Concomitant]
     Indication: STENT PLACEMENT
  6. SIMVASTATIN [Concomitant]
     Indication: BLOOD CHOLESTEROL
  7. SOTALOL HCL [Concomitant]
     Indication: BLOOD PRESSURE
     Dosage: 40 IN AM  + 80 AT BEDTIME
  8. PROTONIX [Concomitant]
     Indication: GASTRIC DISORDER
  9. FISH OIL [Concomitant]
     Indication: PRODUCT USED FOR UNKNOWN INDICATION
  10. COQ10 [Concomitant]
     Indication: PRODUCT USED FOR UNKNOWN INDICATION

REACTIONS (7)
  - ANXIETY [None]
  - CHOLELITHIASIS [None]
  - FATIGUE [None]
  - LABORATORY TEST ABNORMAL [None]
  - MUSCLE SPASMS [None]
  - PANCREATITIS [None]
  - VOMITING [None]
